FAERS Safety Report 19819526 (Version 1)
Quarter: 2021Q3

REPORT INFORMATION
  Report Type: Spontaneous
  Country: US (occurrence: US)
  Receive Date: 20210913
  Receipt Date: 20210913
  Transmission Date: 20211014
  Serious: No
  Sender: FDA-Public Use
  Company Number: US-AMGEN-USASP2021134831

PATIENT
  Age: 79 Year
  Sex: Female

DRUGS (1)
  1. RITUXIMAB. [Suspect]
     Active Substance: RITUXIMAB
     Indication: MICROSCOPIC POLYANGIITIS
     Dosage: UNK
     Route: 065

REACTIONS (1)
  - Therapeutic product effect incomplete [Unknown]
